FAERS Safety Report 9348469 (Version 1)
Quarter: 2013Q2

REPORT INFORMATION
  Report Type: Spontaneous
  Country: US (occurrence: None)
  Receive Date: 20130613
  Receipt Date: 20130613
  Transmission Date: 20140414
  Serious: Yes (Disabling)
  Sender: FDA-Public Use
  Company Number: None

PATIENT
  Age: 34 Year
  Sex: Female
  Weight: 91.4 kg

DRUGS (4)
  1. SAPHRIS [Suspect]
     Indication: MAJOR DEPRESSION
     Route: 048
     Dates: start: 20121012, end: 20130327
  2. SAPHRIS [Suspect]
     Indication: PSYCHOTIC DISORDER
     Route: 048
     Dates: start: 20121012, end: 20130327
  3. SAPHRIS [Suspect]
     Indication: OBSESSIVE-COMPULSIVE PERSONALITY DISORDER
     Route: 048
     Dates: start: 20121012, end: 20130327
  4. HYDROXYZINE [Concomitant]

REACTIONS (3)
  - Musculoskeletal stiffness [None]
  - Mastication disorder [None]
  - Coordination abnormal [None]
